FAERS Safety Report 7519042-2 (Version None)
Quarter: 2011Q2

REPORT INFORMATION
  Report Type: 
  Country: None (occurrence: None)
  Receive Date: 20110602
  Receipt Date: 20110527
  Transmission Date: 20111010
  Serious: Yes (Other)
  Sender: FDA-Public Use
  Company Number: CA-ROCHE-733640

PATIENT
  Sex: Female

DRUGS (2)
  1. BEVACIZUMAB [Suspect]
     Indication: OVARIAN CANCER
     Dosage: FORM: INFUSION
     Route: 042
  2. SYNTHROID [Concomitant]

REACTIONS (4)
  - FATIGUE [None]
  - ASCITES [None]
  - NAUSEA [None]
  - NEOPLASM MALIGNANT [None]
